FAERS Safety Report 26004557 (Version 1)
Quarter: 2025Q4

REPORT INFORMATION
  Report Type: Spontaneous
  Country: GB (occurrence: GB)
  Receive Date: 20251106
  Receipt Date: 20251106
  Transmission Date: 20260118
  Serious: Yes (Other)
  Sender: ACCORD
  Company Number: None

PATIENT
  Age: 25 Year
  Sex: Female

DRUGS (4)
  1. ARIPIPRAZOLE [Suspect]
     Active Substance: ARIPIPRAZOLE
     Indication: Mania
     Dosage: 20MG ONCE A DAY IN THE MORNING
     Dates: end: 20250301
  2. PROCYCLIDINE [Concomitant]
     Active Substance: PROCYCLIDINE
     Indication: Extrapyramidal disorder
  3. DESOGESTREL [Concomitant]
     Active Substance: DESOGESTREL
     Indication: Contraception
  4. PROPRANOLOL [Concomitant]
     Active Substance: PROPRANOLOL HYDROCHLORIDE
     Indication: Restless legs syndrome

REACTIONS (5)
  - Tremor [Recovered/Resolved]
  - Joint stiffness [Recovered/Resolved]
  - Muscular weakness [Recovered/Resolved]
  - Ectrodactyly [Recovered/Resolved]
  - Pain in extremity [Recovered/Resolved]

NARRATIVE: CASE EVENT DATE: 20211115
